FAERS Safety Report 20960359 (Version 3)
Quarter: 2022Q3

REPORT INFORMATION
  Report Type: Spontaneous
  Country: US (occurrence: US)
  Receive Date: 20220615
  Receipt Date: 20220705
  Transmission Date: 20221027
  Serious: No
  Sender: FDA-Public Use
  Company Number: US-LEADINGPHARMA-US-2022LEASPO00085

PATIENT
  Age: 67 Year
  Sex: Female
  Weight: 122 kg

DRUGS (1)
  1. FUROSEMIDE [Suspect]
     Active Substance: FUROSEMIDE
     Indication: Fluid retention
     Route: 048
     Dates: start: 20220603, end: 20220603

REACTIONS (11)
  - Tongue discomfort [Not Recovered/Not Resolved]
  - Stomatitis [Not Recovered/Not Resolved]
  - Product taste abnormal [Not Recovered/Not Resolved]
  - Product odour abnormal [Not Recovered/Not Resolved]
  - Dysgeusia [Not Recovered/Not Resolved]
  - Product substitution issue [Unknown]
  - Hypersensitivity [Not Recovered/Not Resolved]
  - Swollen tongue [Unknown]
  - Pruritus [Unknown]
  - Palpitations [Unknown]
  - Agitation [Unknown]

NARRATIVE: CASE EVENT DATE: 20220603
